FAERS Safety Report 19057450 (Version 1)
Quarter: 2021Q1

REPORT INFORMATION
  Report Type: Other
  Country: ZA (occurrence: ZA)
  Receive Date: 20210324
  Receipt Date: 20210324
  Transmission Date: 20210420
  Serious: Yes (Hospitalization, Other)
  Sender: FDA-Public Use
  Company Number: ZA-DEXPHARM-20210365

PATIENT
  Age: 79 Year
  Sex: Female

DRUGS (2)
  1. CIPROFLOXACIN. [Interacting]
     Active Substance: CIPROFLOXACIN
  2. LANSOPRAZOLE. [Suspect]
     Active Substance: LANSOPRAZOLE

REACTIONS (3)
  - Enteritis infectious [Unknown]
  - Drug interaction [Unknown]
  - Clostridium difficile infection [Unknown]
